FAERS Safety Report 10285801 (Version 3)
Quarter: 2014Q3

REPORT INFORMATION
  Report Type: Spontaneous
  Country: US (occurrence: None)
  Receive Date: 20140703
  Receipt Date: 20140905
  Transmission Date: 20150326
  Serious: Yes (Other)
  Sender: FDA-Public Use
  Company Number: UNT-2014-002476

PATIENT
  Age: 39 Year
  Sex: Female
  Weight: 53.5 kg

DRUGS (4)
  1. REVATIO (SILDENAFIL CITRATE) [Concomitant]
  2. REMODULIN [Suspect]
     Active Substance: TREPROSTINIL
     Indication: PULMONARY ARTERIAL HYPERTENSION
     Route: 058
     Dates: start: 20131105
  3. OXYCONTIN [Suspect]
     Active Substance: OXYCODONE HYDROCHLORIDE
     Indication: PRODUCT USED FOR UNKNOWN INDICATION
     Route: 048
  4. LETAIRIS [Suspect]
     Active Substance: AMBRISENTAN
     Indication: PRODUCT USED FOR UNKNOWN INDICATION
     Dates: start: 20100916

REACTIONS (14)
  - Infusion site pain [None]
  - Haematemesis [None]
  - Infusion site pruritus [None]
  - Hypersensitivity [None]
  - Vomiting [None]
  - Pruritus [None]
  - Infusion site rash [None]
  - Nausea [None]
  - Palpitations [None]
  - Infusion site swelling [None]
  - Asthenia [None]
  - Infusion site erythema [None]
  - Oedema [None]
  - Headache [None]
